FAERS Safety Report 17098954 (Version 1)
Quarter: 2019Q4

REPORT INFORMATION
  Report Type: Spontaneous
  Country: US (occurrence: US)
  Receive Date: 20191202
  Receipt Date: 20191202
  Transmission Date: 20200122
  Serious: No
  Sender: FDA-Public Use
  Company Number: US-NODEN PHARMA DAC-NOD-2018-00098

PATIENT
  Sex: Female

DRUGS (2)
  1. TEKTURNA [Suspect]
     Active Substance: ALISKIREN HEMIFUMARATE
     Indication: SCLERODERMA
     Dosage: UNK,QD
     Route: 065
     Dates: start: 2006
  2. TEKTURNA [Suspect]
     Active Substance: ALISKIREN HEMIFUMARATE
     Indication: BLOOD PRESSURE ABNORMAL

REACTIONS (1)
  - Off label use [Unknown]
